FAERS Safety Report 19304919 (Version 1)
Quarter: 2021Q2

REPORT INFORMATION
  Report Type: Report from Study
  Country: ES (occurrence: ES)
  Receive Date: 20210525
  Receipt Date: 20210525
  Transmission Date: 20210717
  Serious: Yes (Other)
  Sender: FDA-Public Use
  Company Number: ES-GLAXOSMITHKLINE-ES2021EME105400

PATIENT
  Age: 34 Year
  Sex: Male

DRUGS (1)
  1. MEPOLIZUMAB [Suspect]
     Active Substance: MEPOLIZUMAB
     Indication: ASTHMA
     Dosage: 100 MG
     Dates: start: 20200112

REACTIONS (3)
  - Arthralgia [Not Recovered/Not Resolved]
  - Thrombosis [Unknown]
  - Accident at work [Unknown]

NARRATIVE: CASE EVENT DATE: 20210201
